FAERS Safety Report 8935081 (Version 1)
Quarter: 2012Q4

REPORT INFORMATION
  Report Type: 
  Country: US (occurrence: US)
  Receive Date: 20121129
  Receipt Date: 20121129
  Transmission Date: 20130627
  Serious: No
  Sender: FDA-Public Use
  Company Number: US-ASTRAZENECA-2012SE87394

PATIENT
  Age: 34 Year
  Sex: Male
  Weight: 107.5 kg

DRUGS (4)
  1. SEROQUEL XR [Suspect]
     Route: 048
     Dates: start: 2005
  2. SEROQUEL XR [Suspect]
     Route: 048
     Dates: start: 2005
  3. CELEXA [Concomitant]
  4. NEUROTONIN [Concomitant]

REACTIONS (5)
  - Pain [Not Recovered/Not Resolved]
  - Nausea [Not Recovered/Not Resolved]
  - Anxiety [Not Recovered/Not Resolved]
  - Drug withdrawal syndrome [Unknown]
  - Drug dose omission [Unknown]
